FAERS Safety Report 5138946-1 (Version None)
Quarter: 2006Q4

REPORT INFORMATION
  Report Type: 
  Country: None (occurrence: None)
  Receive Date: 20061030
  Receipt Date: 20060519
  Transmission Date: 20070319
  Serious: Yes (Other)
  Sender: FDA-Public Use
  Company Number: US-GLAXOSMITHKLINE-A0606344A

PATIENT
  Age: 50 Year
  Sex: Male

DRUGS (4)
  1. ADVAIR HFA [Suspect]
     Indication: ASTHMA
     Route: 055
  2. FLONASE [Suspect]
     Route: 045
  3. QVAR 40 [Concomitant]
  4. FORADIL [Concomitant]

REACTIONS (2)
  - CANDIDIASIS [None]
  - GLAUCOMA [None]
